FAERS Safety Report 25081864 (Version 1)
Quarter: 2025Q1

REPORT INFORMATION
  Report Type: Spontaneous
  Country: US (occurrence: US)
  Receive Date: 20250317
  Receipt Date: 20250317
  Transmission Date: 20250409
  Serious: Yes (Hospitalization, Other)
  Sender: NOVO NORDISK
  Company Number: US-NOVOPROD-1386688

PATIENT
  Sex: Male

DRUGS (1)
  1. WEGOVY [Suspect]
     Active Substance: SEMAGLUTIDE
     Indication: Product use in unapproved indication

REACTIONS (3)
  - Intestinal perforation [Recovered/Resolved]
  - Diverticulitis [Recovered/Resolved]
  - Diverticulum intestinal [Recovered/Resolved]
